FAERS Safety Report 20670597 (Version 1)
Quarter: 2022Q2

REPORT INFORMATION
  Report Type: Spontaneous
  Country: US (occurrence: None)
  Receive Date: 20220401
  Receipt Date: 20220401
  Transmission Date: 20220721
  Serious: No
  Sender: FDA-Public Use
  Company Number: None

PATIENT
  Age: 57 Year
  Sex: Female
  Weight: 68.04 kg

DRUGS (1)
  1. SKYRIZI [Suspect]
     Active Substance: RISANKIZUMAB-RZAA
     Indication: Psoriasis
     Dosage: FREQUENCY : WEEKLY;?INJECT 150MG (1 PEN) SUBCUTANEOUSLY AT WEEK O AND WEEK 4 AS DIRECTED.?
     Route: 058
     Dates: start: 202109

REACTIONS (2)
  - COVID-19 [None]
  - Neoplasm malignant [None]
